FAERS Safety Report 26144299 (Version 1)
Quarter: 2025Q4

REPORT INFORMATION
  Report Type: Spontaneous
  Country: US (occurrence: US)
  Receive Date: 20251211
  Receipt Date: 20251211
  Transmission Date: 20260118
  Serious: Yes (Life-Threatening, Hospitalization)
  Sender: Steriscience PTE
  Company Number: US-STERISCIENCE B.V.-2025-ST-001687

PATIENT
  Age: 69 Year
  Sex: Female

DRUGS (11)
  1. SODIUM BICARBONATE [Interacting]
     Active Substance: SODIUM BICARBONATE
     Indication: Arrhythmia prophylaxis
     Dosage: UNK
     Route: 065
  2. SODIUM BICARBONATE [Interacting]
     Active Substance: SODIUM BICARBONATE
     Dosage: THE LAST DOSE OF SODIUM BICARBONATE WAS GIVEN AT HOUR 37
     Route: 065
  3. FLECAINIDE [Interacting]
     Active Substance: FLECAINIDE
     Indication: Atrial fibrillation
     Dosage: 50 MILLIGRAM, QD
     Route: 065
  4. FLECAINIDE [Interacting]
     Active Substance: FLECAINIDE
     Indication: Atrial flutter
     Dosage: 100 MILLIGRAM, BID
     Route: 065
  5. ACETAZOLAMIDE [Suspect]
     Active Substance: ACETAZOLAMIDE
     Indication: Arrhythmia prophylaxis
     Dosage: UNK
     Route: 065
  6. ACETAZOLAMIDE [Suspect]
     Active Substance: ACETAZOLAMIDE
     Dosage: ADMINISTERED INTERMITTENTLY UNTIL 29H INTO HOSPITAL COURSE
     Route: 065
  7. AMIODARONE [Suspect]
     Active Substance: AMIODARONE
     Indication: Arrhythmia prophylaxis
     Dosage: INFUSION
     Route: 065
  8. SODIUM CHLORIDE [Suspect]
     Active Substance: SODIUM CHLORIDE
     Indication: Arrhythmia prophylaxis
     Dosage: UNK
     Route: 065
  9. SODIUM CHLORIDE [Suspect]
     Active Substance: SODIUM CHLORIDE
     Dosage: HYPERTONIC SALINE
     Route: 065
  10. EPINEPHRINE [Concomitant]
     Active Substance: EPINEPHRINE
     Indication: Tachycardia
     Dosage: 1 MILLIGRAM
     Route: 065
  11. EPINEPHRINE [Concomitant]
     Active Substance: EPINEPHRINE
     Dosage: UNK
     Route: 065

REACTIONS (4)
  - Drug interaction [Unknown]
  - Toxicity to various agents [Unknown]
  - Alkalosis [None]
  - Drug ineffective for unapproved indication [Unknown]
